FAERS Safety Report 8204406-4 (Version None)
Quarter: 2012Q1

REPORT INFORMATION
  Report Type: 
  Country: None (occurrence: None)
  Receive Date: 20120313
  Receipt Date: 20120313
  Transmission Date: 20120608
  Serious: No
  Sender: FDA-Public Use
  Company Number: None

PATIENT
  Age: 59 Year
  Sex: Male
  Weight: 106.59 kg

DRUGS (1)
  1. TANEZUMAB [Suspect]
     Indication: ARTHRITIS
     Dosage: 1 0Z
     Route: 042
     Dates: start: 20080601, end: 20100701

REACTIONS (2)
  - CONDITION AGGRAVATED [None]
  - ARTHRITIS [None]
